FAERS Safety Report 6313071-2 (Version None)
Quarter: 2009Q3

REPORT INFORMATION
  Report Type: 
  Country: None (occurrence: None)
  Receive Date: 20090818
  Receipt Date: 20090619
  Transmission Date: 20100115
  Serious: Yes (Hospitalization, Other)
  Sender: FDA-Public Use
  Company Number: PHHO2009US05186

PATIENT
  Sex: Male
  Weight: 65.4 kg

DRUGS (31)
  1. BLINDED ACZ885 ACZ+SOLINF+COPD [Suspect]
     Dosage: DOUBLE BLIND
     Route: 042
     Dates: start: 20081202, end: 20090325
  2. BLINDED NO TREATMENT RECEIVED NOMED [Suspect]
     Dosage: DOUBLE BLIND
     Route: 042
     Dates: start: 20081202, end: 20090325
  3. BLINDED PLACEBO COMP-PLA+ [Suspect]
     Dosage: DOUBLE BLIND
     Route: 042
     Dates: start: 20081202, end: 20090325
  4. VANCOMYCIN [Suspect]
  5. SOLU-MEDROL [Suspect]
  6. PREDNISONE [Concomitant]
     Dosage: UNK
     Dates: start: 20030101
  7. SPIRIVA [Concomitant]
     Dosage: UNK
     Dates: start: 20080101
  8. DUONEB [Concomitant]
     Indication: CHRONIC OBSTRUCTIVE PULMONARY DISEASE
     Dosage: UNK
     Dates: start: 20050101
  9. PULMICORT-100 [Concomitant]
     Indication: CHRONIC OBSTRUCTIVE PULMONARY DISEASE
     Dosage: UNK
  10. LASIX [Concomitant]
     Indication: FLUID RETENTION
     Dosage: UNK
     Dates: start: 20060101
  11. METOLAZONE [Concomitant]
     Indication: FLUID RETENTION
     Dosage: UNK
     Dates: start: 20060101
  12. OMEPRAZOLE [Concomitant]
     Indication: UPPER GASTROINTESTINAL HAEMORRHAGE
     Dosage: UNK
     Dates: start: 20080101
  13. POTASSIUM CHLORIDE [Concomitant]
     Dosage: UNK
     Dates: start: 20070101
  14. CALCIUM WITH VITAMIN D [Concomitant]
     Dosage: UNK
     Dates: start: 20070201
  15. PROZAC [Concomitant]
     Indication: DEPRESSION
     Dosage: UNK
     Dates: start: 19961003
  16. ALBUTEROL [Concomitant]
     Indication: CHRONIC OBSTRUCTIVE PULMONARY DISEASE
     Dosage: UNK
     Dates: start: 19971001
  17. ADVAIR HFA [Concomitant]
     Indication: CHRONIC OBSTRUCTIVE PULMONARY DISEASE
     Dosage: UNK
     Dates: start: 20080923
  18. MYCOSTATIN [Concomitant]
     Indication: ORAL CANDIDIASIS
     Dosage: UNK
     Dates: start: 20081203, end: 20081220
  19. HUMULIN R [Concomitant]
     Indication: TYPE 2 DIABETES MELLITUS
     Dosage: UNK
     Dates: start: 20060901
  20. HUMALOG [Concomitant]
     Indication: TYPE 2 DIABETES MELLITUS
     Dosage: UNK
     Dates: start: 20060901
  21. SEPTRA [Concomitant]
  22. LEVAQUIN [Concomitant]
  23. MAALOX [Concomitant]
  24. MORPHINE [Concomitant]
  25. DORIPENEM [Concomitant]
  26. DOXYCYCLINE [Concomitant]
  27. NITROGLYCERIN [Concomitant]
  28. LOPRESSOR [Concomitant]
  29. CEFTAZIDIME [Concomitant]
  30. IPRATROPIUM BROMIDE [Concomitant]
  31. INSULIN [Concomitant]

REACTIONS (31)
  - ARTERIOSCLEROSIS CORONARY ARTERY [None]
  - ASTHENIA [None]
  - ATELECTASIS [None]
  - BLOOD CHLORIDE DECREASED [None]
  - BLOOD SODIUM DECREASED [None]
  - BRONCHITIS CHRONIC [None]
  - CHEST DISCOMFORT [None]
  - CHRONIC OBSTRUCTIVE PULMONARY DISEASE [None]
  - COUGH [None]
  - DIABETES MELLITUS [None]
  - DISEASE PROGRESSION [None]
  - DYSKINESIA [None]
  - DYSPNOEA [None]
  - EMPHYSEMA [None]
  - FATIGUE [None]
  - LEFT VENTRICULAR HYPERTROPHY [None]
  - LUNG CONSOLIDATION [None]
  - LUNG DISORDER [None]
  - LUNG INFILTRATION [None]
  - OEDEMA PERIPHERAL [None]
  - PLATELET COUNT DECREASED [None]
  - PNEUMONIA [None]
  - PROLONGED EXPIRATION [None]
  - PSEUDOMONAS INFECTION [None]
  - PULMONARY CALCIFICATION [None]
  - SINUS TACHYCARDIA [None]
  - SPUTUM DISCOLOURED [None]
  - STREPTOCOCCAL INFECTION [None]
  - TACHYPNOEA [None]
  - THROMBOCYTOPENIA [None]
  - WHEEZING [None]
